FAERS Safety Report 8422799-X (Version None)
Quarter: 2012Q2

REPORT INFORMATION
  Report Type: 
  Country: None (occurrence: None)
  Receive Date: 20120608
  Receipt Date: 20110926
  Transmission Date: 20120825
  Serious: Yes (Hospitalization, Disabling, Other)
  Sender: FDA-Public Use
  Company Number: US-MERCK-1103USA01555

PATIENT
  Age: 68 Year
  Sex: Female
  Weight: 70 kg

DRUGS (6)
  1. FOSAMAX [Suspect]
     Route: 048
     Dates: end: 20051011
  2. FOSAMAX [Suspect]
     Route: 048
     Dates: end: 20051011
  3. FOSAMAX [Suspect]
     Indication: OSTEOPENIA
     Route: 048
     Dates: start: 20021201
  4. FOSAMAX [Suspect]
     Route: 048
     Dates: start: 20040811
  5. FOSAMAX [Suspect]
     Indication: OSTEOPOROSIS PROPHYLAXIS
     Route: 048
     Dates: start: 20021201
  6. FOSAMAX [Suspect]
     Route: 048
     Dates: start: 20040811

REACTIONS (34)
  - TRANSIENT ISCHAEMIC ATTACK [None]
  - CATARACT [None]
  - RASH [None]
  - SEASONAL ALLERGY [None]
  - OSTEONECROSIS OF JAW [None]
  - SINUSITIS [None]
  - ORAL DISORDER [None]
  - ABDOMINAL DISCOMFORT [None]
  - SPONDYLOLISTHESIS [None]
  - STOMATITIS [None]
  - ARTHRALGIA [None]
  - HYPERSENSITIVITY [None]
  - INTERVERTEBRAL DISC DISORDER [None]
  - SYNOVIAL CYST [None]
  - ABSCESS [None]
  - ARTHRITIS [None]
  - DENTURE WEARER [None]
  - DRUG HYPERSENSITIVITY [None]
  - LUMBAR SPINAL STENOSIS [None]
  - FACET JOINT SYNDROME [None]
  - OVERDOSE [None]
  - EXOSTOSIS [None]
  - EXPOSED BONE IN JAW [None]
  - TOOTH DISORDER [None]
  - ORAL INFECTION [None]
  - OSTEOARTHRITIS [None]
  - BLOOD PRESSURE INCREASED [None]
  - TOOTH FRACTURE [None]
  - PAIN IN JAW [None]
  - DENTAL CARIES [None]
  - DENTAL PROSTHESIS USER [None]
  - BURSITIS [None]
  - HERPES ZOSTER [None]
  - HEMIPARESIS [None]
